FAERS Safety Report 5571470-0 (Version None)
Quarter: 2007Q4

REPORT INFORMATION
  Report Type: 
  Country: None (occurrence: None)
  Receive Date: 20071221
  Receipt Date: 20071124
  Transmission Date: 20080405
  Serious: No
  Sender: FDA-Public Use
  Company Number: US-BAYER-200715293NA

PATIENT
  Age: 22 Year
  Sex: Female
  Weight: 49 kg

DRUGS (3)
  1. YAZ [Suspect]
     Indication: CONTRACEPTION
     Route: 048
     Dates: start: 20070601
  2. BORIC ACID [Concomitant]
     Indication: FUNGAL INFECTION
  3. MULTI-VITAMIN [Concomitant]
     Indication: DRUG USE FOR UNKNOWN INDICATION
     Route: 048

REACTIONS (2)
  - FUNGAL INFECTION [None]
  - GINGIVITIS [None]
